FAERS Safety Report 20451932 (Version 1)
Quarter: 2022Q1

REPORT INFORMATION
  Report Type: Report from Study
  Country: JP (occurrence: JP)
  Receive Date: 20220209
  Receipt Date: 20220209
  Transmission Date: 20220424
  Serious: Yes (Other)
  Sender: FDA-Public Use
  Company Number: JP-ACE-536-MDS-004-2041002-20220207-0002SG

PATIENT
  Age: 69 Year
  Sex: Female
  Weight: 52 kg

DRUGS (8)
  1. LUSPATERCEPT [Suspect]
     Active Substance: LUSPATERCEPT
     Indication: Anaemia of malignant disease
     Dosage: 51.8 MG X 1 X 3 WEEKS
     Route: 058
     Dates: start: 20210315
  2. LUSPATERCEPT [Suspect]
     Active Substance: LUSPATERCEPT
     Dosage: 89.25 MG
     Route: 058
     Dates: start: 20220124
  3. ALFACALCIDOL [Concomitant]
     Active Substance: ALFACALCIDOL
     Indication: Osteoporosis
     Dosage: 1.0 X 1 X 1 DAYS
     Route: 048
     Dates: start: 20210427
  4. AMLODIPINE BESYLATE [Concomitant]
     Active Substance: AMLODIPINE BESYLATE
     Indication: Hypertension
     Dosage: 5 X 1 X 1 DAYS
     Route: 048
     Dates: start: 20210303
  5. METHYLDOPA [Concomitant]
     Active Substance: METHYLDOPA
     Indication: Hypertension
     Dosage: 125 X 1 X 1 DAYS
     Route: 048
     Dates: start: 20210607
  6. METHYLDOPA [Concomitant]
     Active Substance: METHYLDOPA
     Dosage: 250 X 1 X 1 DAYS
     Route: 048
     Dates: start: 20210608
  7. TELMISARTAN [Concomitant]
     Active Substance: TELMISARTAN
     Indication: Hypertension
     Dosage: 80 X 1 X 1 DAYS
     Route: 048
     Dates: start: 20210305
  8. TRICHLORMETHIAZIDE [Concomitant]
     Active Substance: TRICHLORMETHIAZIDE
     Indication: Hypertension
     Dosage: 2 X 1 X 1 DAYS
     Route: 048
     Dates: start: 20210305

REACTIONS (1)
  - Paget^s disease of nipple [Not Recovered/Not Resolved]

NARRATIVE: CASE EVENT DATE: 20220111
